FAERS Safety Report 13292389 (Version 3)
Quarter: 2017Q2

REPORT INFORMATION
  Report Type: Report from Study
  Country: US (occurrence: US)
  Receive Date: 20170303
  Receipt Date: 20170418
  Transmission Date: 20170830
  Serious: Yes (Death, Hospitalization, Other)
  Sender: FDA-Public Use
  Company Number: US-GILEAD-2017-0260667

PATIENT
  Age: 79 Year
  Sex: Female
  Weight: 76 kg

DRUGS (11)
  1. HYDRALAZINE [Concomitant]
     Active Substance: HYDRALAZINE HYDROCHLORIDE
     Dates: end: 20170222
  2. ASPIRIN                            /00002701/ [Concomitant]
     Active Substance: ASPIRIN
     Dates: end: 20170222
  3. CLOTRIMAZOLE. [Concomitant]
     Active Substance: CLOTRIMAZOLE
     Dates: end: 20170222
  4. PREDNISONE. [Concomitant]
     Active Substance: PREDNISONE
     Dates: end: 20170222
  5. HYDROXYCHLOROQUINE [Concomitant]
     Active Substance: HYDROXYCHLOROQUINE
     Dates: end: 20170222
  6. ALLOPURINOL. [Concomitant]
     Active Substance: ALLOPURINOL
     Dates: end: 20170222
  7. RENVELA [Concomitant]
     Active Substance: SEVELAMER CARBONATE
  8. ZETIA [Concomitant]
     Active Substance: EZETIMIBE
     Dates: end: 20170222
  9. FISH OIL [Concomitant]
     Active Substance: FISH OIL
     Dates: end: 20170222
  10. AMBRISENTAN [Suspect]
     Active Substance: AMBRISENTAN
     Indication: PULMONARY HYPERTENSION
     Dosage: 10 MG, QD
     Route: 065
     Dates: start: 20110912
  11. SODIUM BICARBONATE. [Concomitant]
     Active Substance: SODIUM BICARBONATE
     Dates: end: 20170222

REACTIONS (10)
  - Chronic kidney disease [Not Recovered/Not Resolved]
  - Transcatheter aortic valve implantation [Unknown]
  - Hypertension [Unknown]
  - Cardiac failure congestive [Not Recovered/Not Resolved]
  - Sleep apnoea syndrome [Not Recovered/Not Resolved]
  - Pulmonary hypertension [Not Recovered/Not Resolved]
  - Diabetes mellitus [Not Recovered/Not Resolved]
  - Cerebrovascular accident [Fatal]
  - Atrial fibrillation [Not Recovered/Not Resolved]
  - Connective tissue disorder [Not Recovered/Not Resolved]
